FAERS Safety Report 20427954 (Version 1)
Quarter: 2022Q1

REPORT INFORMATION
  Report Type: Spontaneous
  Country: US (occurrence: None)
  Receive Date: 20220204
  Receipt Date: 20220204
  Transmission Date: 20220423
  Serious: No
  Sender: FDA-Public Use
  Company Number: 2022A018823

PATIENT
  Sex: Female
  Weight: 60.3 kg

DRUGS (1)
  1. PULMICORT FLEXHALER [Suspect]
     Active Substance: BUDESONIDE
     Indication: Asthma
     Route: 055
     Dates: start: 202201

REACTIONS (11)
  - Dyspnoea [Unknown]
  - Malaise [Unknown]
  - Dyspnoea [Unknown]
  - Condition aggravated [Unknown]
  - Gait disturbance [Unknown]
  - Feeling drunk [Unknown]
  - Incorrect dose administered by device [Unknown]
  - Weight fluctuation [Unknown]
  - Product use issue [Unknown]
  - Drug ineffective [Unknown]
  - Device malfunction [Unknown]
